FAERS Safety Report 12561555 (Version 5)
Quarter: 2017Q2

REPORT INFORMATION
  Report Type: Spontaneous
  Country: JP (occurrence: JP)
  Receive Date: 20160715
  Receipt Date: 20170605
  Transmission Date: 20170830
  Serious: Yes (Death, Other)
  Sender: FDA-Public Use
  Company Number: JP-GLAXOSMITHKLINE-JP2016JPN100674

PATIENT
  Age: 37 Year
  Sex: Female
  Weight: 89 kg

DRUGS (16)
  1. EXCEGRAN [Concomitant]
     Active Substance: ZONISAMIDE
     Dosage: 100 MG, BID
     Dates: start: 20121120, end: 20121204
  2. TEGRETOL [Concomitant]
     Active Substance: CARBAMAZEPINE
     Dosage: 400 MG, BID
     Dates: start: 20121120, end: 20130819
  3. DEPAKENE [Concomitant]
     Active Substance: VALPROIC ACID
     Dosage: 400 MG, BID
     Dates: start: 20150108, end: 20150218
  4. LAMICTAL [Suspect]
     Active Substance: LAMOTRIGINE
     Dosage: 100 MG, BID
     Route: 048
     Dates: start: 20130212, end: 20150218
  5. LAMICTAL [Suspect]
     Active Substance: LAMOTRIGINE
     Dosage: 150 MG, BID
     Route: 048
     Dates: start: 20150219, end: 20150401
  6. LAMICTAL [Suspect]
     Active Substance: LAMOTRIGINE
     Dosage: 200 MG, BID
     Route: 048
     Dates: start: 20150730, end: 20151107
  7. TEGRETOL [Concomitant]
     Active Substance: CARBAMAZEPINE
     Dosage: 200 MG, BID
     Dates: start: 20130820, end: 20130916
  8. DEPAKENE [Concomitant]
     Active Substance: VALPROIC ACID
     Dosage: 400 MG, BID
     Dates: start: 20121120, end: 20130220
  9. LAMICTAL [Suspect]
     Active Substance: LAMOTRIGINE
     Dosage: 50 MG, QD
     Route: 048
     Dates: start: 20121219, end: 20130102
  10. LAMICTAL [Suspect]
     Active Substance: LAMOTRIGINE
     Dosage: 75 MG, QD
     Route: 048
     Dates: start: 20130103, end: 20130116
  11. LAMICTAL [Suspect]
     Active Substance: LAMOTRIGINE
     Dosage: 175 MG, BID
     Route: 048
     Dates: start: 20150402, end: 20150729
  12. LAMICTAL [Suspect]
     Active Substance: LAMOTRIGINE
     Dosage: 75 MG, BID
     Route: 048
     Dates: start: 20130131, end: 20130211
  13. DEPAKENE [Concomitant]
     Active Substance: VALPROIC ACID
     Dosage: 700 MG, BID
     Dates: start: 20130221, end: 20150107
  14. LAMICTAL [Suspect]
     Active Substance: LAMOTRIGINE
     Indication: EPILEPSY
     Dosage: 25 MG, QOD
     Route: 048
     Dates: start: 20121120, end: 20121203
  15. LAMICTAL [Suspect]
     Active Substance: LAMOTRIGINE
     Indication: FOCAL DYSCOGNITIVE SEIZURES
     Dosage: 25 MG, QD
     Route: 048
     Dates: start: 20121204, end: 20121218
  16. LAMICTAL [Suspect]
     Active Substance: LAMOTRIGINE
     Dosage: 100 MG, QD
     Route: 048
     Dates: start: 20130117, end: 20130130

REACTIONS (10)
  - Cardio-respiratory arrest [Unknown]
  - Status epilepticus [Fatal]
  - Loss of consciousness [Unknown]
  - Vomiting [Unknown]
  - Altered state of consciousness [Unknown]
  - Generalised tonic-clonic seizure [Unknown]
  - Exposure during pregnancy [Unknown]
  - Seizure [Unknown]
  - Drug effect incomplete [Unknown]
  - Asphyxia [Fatal]

NARRATIVE: CASE EVENT DATE: 20151106
